FAERS Safety Report 9001480 (Version 1)
Quarter: 2013Q1

REPORT INFORMATION
  Report Type: Spontaneous
  Country: GB (occurrence: GB)
  Receive Date: 20130107
  Receipt Date: 20130107
  Transmission Date: 20140127
  Serious: Yes (Hospitalization)
  Sender: FDA-Public Use
  Company Number: PHHY2012GB122064

PATIENT
  Age: 62 Year
  Sex: Male

DRUGS (15)
  1. LANSOPRAZOLE [Suspect]
     Dosage: 30 MG, QD
  2. AMOXICILLIN [Suspect]
     Dosage: 500 MG, TID
     Route: 042
     Dates: start: 20110310, end: 20110310
  3. LEVOFLOXACIN [Suspect]
     Dosage: 500 MG, BID
     Route: 042
     Dates: start: 20110311, end: 20110321
  4. MEROPENEM [Suspect]
     Dosage: 1 G, TID
     Dates: start: 20110312, end: 20110321
  5. TEICOPLANIN [Suspect]
     Dosage: 800 MG, QD
     Dates: start: 20110310, end: 20110313
  6. CLARITHROMYCIN [Suspect]
     Dosage: 500 MG, BID
     Route: 042
     Dates: start: 20110310, end: 20110310
  7. FLUCLOXACILLIN [Suspect]
     Dosage: 500 MG, QID
     Route: 048
     Dates: start: 20110329, end: 20110330
  8. ERYTHROMYCIN [Suspect]
     Dosage: 125 MG, TID
     Route: 042
     Dates: start: 20110314, end: 20110317
  9. LOPERAMIDE [Concomitant]
     Dosage: 2 MG, QID
  10. HYOSCINE BUTYLBROMIDE [Concomitant]
     Dosage: 20 MG, QID
  11. FLUOXETINE [Concomitant]
     Dosage: 20 MG, QD
  12. PARACETAMOL [Concomitant]
     Dosage: 1 G, QID, AS NEEDED
  13. FUROSEMIDE [Concomitant]
     Dosage: 80 MG, BID
  14. SENNA [Concomitant]
     Dosage: 15 MG, AT NIGHT
  15. FERROUS SULPHATE [Concomitant]
     Dosage: 200 MG, TID

REACTIONS (1)
  - Clostridium difficile infection [Unknown]
